FAERS Safety Report 5799393-2 (Version None)
Quarter: 2008Q3

REPORT INFORMATION
  Report Type: 
  Country: None (occurrence: None)
  Receive Date: 20080703
  Receipt Date: 20080624
  Transmission Date: 20090109
  Serious: Yes (Other)
  Sender: FDA-Public Use
  Company Number: US-PFIZER INC-2008054112

PATIENT
  Sex: Female
  Weight: 82.727 kg

DRUGS (2)
  1. CHANTIX [Suspect]
     Indication: SMOKING CESSATION THERAPY
     Dates: start: 20080101, end: 20080201
  2. THYROID HORMONES [Concomitant]

REACTIONS (3)
  - BACK PAIN [None]
  - CONVULSION [None]
  - DYSSTASIA [None]
